FAERS Safety Report 4286481-5 (Version None)
Quarter: 2004Q1

REPORT INFORMATION
  Report Type: 
  Country: None (occurrence: None)
  Receive Date: 20040204
  Receipt Date: 20040126
  Transmission Date: 20041129
  Serious: Yes (Hospitalization, Other)
  Sender: FDA-Public Use
  Company Number: US-JNJFOC-20040100546

PATIENT
  Age: 34 Year
  Sex: Female
  Weight: 108.8633 kg

DRUGS (6)
  1. DURAGESIC [Suspect]
     Dosage: SEE IMAGE
     Route: 062
     Dates: start: 20030101, end: 20030101
  2. DURAGESIC [Suspect]
     Dosage: SEE IMAGE
     Route: 062
     Dates: start: 20030103
  3. PRILOSEC [Concomitant]
  4. FLOMAX (TANSULOSIN HYDROCHLORIDE) [Concomitant]
  5. CLONAZEPAM [Concomitant]
  6. ACYCLOVIR [Concomitant]

REACTIONS (4)
  - DRUG INEFFECTIVE [None]
  - GRAND MAL CONVULSION [None]
  - MUSCLE TWITCHING [None]
  - PHARMACEUTICAL PRODUCT COMPLAINT [None]
